FAERS Safety Report 9396083 (Version 1)
Quarter: 2013Q3

REPORT INFORMATION
  Report Type: Spontaneous
  Country: US (occurrence: US)
  Receive Date: 20130711
  Receipt Date: 20130711
  Transmission Date: 20140515
  Serious: Yes (Other)
  Sender: FDA-Public Use
  Company Number: US-JNJFOC-20130701932

PATIENT
  Sex: Female
  Weight: 68.04 kg

DRUGS (1)
  1. DOXORUBICIN HYDROCHLORIDE (DOXIL) [Suspect]
     Indication: OVARIAN CANCER
     Route: 042
     Dates: start: 201306

REACTIONS (2)
  - Neoplasm skin [Not Recovered/Not Resolved]
  - Neoplasm progression [Not Recovered/Not Resolved]
